FAERS Safety Report 16389024 (Version 1)
Quarter: 2019Q2

REPORT INFORMATION
  Report Type: Spontaneous
  Country: FR (occurrence: FR)
  Receive Date: 20190604
  Receipt Date: 20190604
  Transmission Date: 20190711
  Serious: Yes (Hospitalization, Other)
  Sender: FDA-Public Use
  Company Number: FR-GLAXOSMITHKLINE-FR2019098618

PATIENT
  Age: 66 Year
  Sex: Male
  Weight: 88 kg

DRUGS (12)
  1. ESOMEPRAZOLE. [Suspect]
     Active Substance: ESOMEPRAZOLE MAGNESIUM
     Indication: GASTROOESOPHAGEAL REFLUX DISEASE
     Dosage: 20 MILLIGRAM, DRUG INTERVAL 1 DAY
     Route: 048
  2. NEOFORDEX (DEXAMETHASONE ACETATE) [Suspect]
     Active Substance: DEXAMETHASONE ACETATE
     Indication: PLASMA CELL MYELOMA
     Dosage: 320 MILLIGRAM
     Route: 048
     Dates: start: 20181001, end: 20190114
  3. EPORATIO [Suspect]
     Active Substance: ERYTHROPOIETIN
     Indication: ANAEMIA
     Dosage: 1 DOSAGE FORM, DRUG INTERVAL 1 WEEK
     Route: 058
     Dates: start: 20181022
  4. LEDERFOLINE [Suspect]
     Active Substance: LEUCOVORIN CALCIUM
     Indication: VITAMIN SUPPLEMENTATION
     Dosage: 25 MILLIGRAM, DRUG INTERVAL 1 WEEK
     Route: 048
     Dates: start: 201810
  5. VELCADE [Suspect]
     Active Substance: BORTEZOMIB
     Indication: PLASMA CELL MYELOMA
     Dosage: 10 MILLIGRAM
     Route: 042
     Dates: start: 20181001, end: 20190114
  6. SIMVASTATINE [Suspect]
     Active Substance: SIMVASTATIN
     Indication: DYSLIPIDAEMIA
     Dosage: 10 MILLIGRAM, DRUG INTERVAL 1 DAY
     Route: 048
     Dates: end: 20190111
  7. POLARAMINE [Suspect]
     Active Substance: DEXCHLORPHENIRAMINE MALEATE
     Indication: PREMEDICATION
     Dosage: UNK
     Route: 042
     Dates: start: 201810, end: 201901
  8. PARACETAMOL [Suspect]
     Active Substance: ACETAMINOPHEN
     Indication: PREMEDICATION
     Dosage: UNK
     Route: 048
     Dates: start: 201810, end: 201901
  9. PENTACARINAT [Suspect]
     Active Substance: PENTAMIDINE ISETHIONATE
     Indication: OPPORTUNISTIC INFECTION PROPHYLAXIS
     Dosage: 1 DOSAGE FORM, DRUG INTERVAL 1 MONTH
     Route: 055
     Dates: start: 20181022
  10. VALACICLOVIR [Suspect]
     Active Substance: VALACYCLOVIR HYDROCHLORIDE
     Indication: OPPORTUNISTIC INFECTION PROPHYLAXIS
     Dosage: 1000 MILLIGRAM, DRUG INTERVAL 1 DAY
     Route: 048
     Dates: start: 201810
  11. ONDANSETRON [Suspect]
     Active Substance: ONDANSETRON
     Indication: PROPHYLAXIS OF NAUSEA AND VOMITING
     Dosage: 32 MILLIGRAM
     Route: 048
     Dates: start: 20181001, end: 20190114
  12. ENDOXAN [Suspect]
     Active Substance: CYCLOPHOSPHAMIDE
     Indication: PLASMA CELL MYELOMA
     Dosage: 1500 MILLIGRAM
     Route: 042
     Dates: start: 20181001, end: 20181127

REACTIONS (2)
  - Polyneuropathy [Not Recovered/Not Resolved]
  - Product use in unapproved indication [Unknown]

NARRATIVE: CASE EVENT DATE: 201811
